FAERS Safety Report 6522313-X (Version None)
Quarter: 2009Q4

REPORT INFORMATION
  Report Type: 
  Country: None (occurrence: None)
  Receive Date: 20091230
  Receipt Date: 20091221
  Transmission Date: 20100525
  Serious: Yes (Hospitalization, Other)
  Sender: FDA-Public Use
  Company Number: B0606155A

PATIENT
  Age: 16 Year
  Sex: Male

DRUGS (2)
  1. LAMICTAL [Suspect]
     Indication: EPILEPSY
     Route: 048
     Dates: start: 20090904
  2. VALPROATE SODIUM [Concomitant]

REACTIONS (4)
  - HAEMORRHAGE SUBCUTANEOUS [None]
  - HOMEOPATHY [None]
  - LEUKOPENIA [None]
  - THROMBOCYTOPENIA [None]
